FAERS Safety Report 7041026-1 (Version None)
Quarter: 2010Q4

REPORT INFORMATION
  Report Type: 
  Country: None (occurrence: None)
  Receive Date: 20101006
  Receipt Date: 20100928
  Transmission Date: 20110411
  Serious: Yes (Other)
  Sender: FDA-Public Use
  Company Number: 2010SP52148

PATIENT
  Age: 25 Year
  Sex: Female
  Weight: 55 kg

DRUGS (1)
  1. IMPLANON [Suspect]
     Indication: CONTRACEPTION
     Dosage: 68 MG; UNK, SBDE
     Route: 059
     Dates: start: 20090729

REACTIONS (4)
  - BIPOLAR I DISORDER [None]
  - CONVULSION [None]
  - DISEASE RECURRENCE [None]
  - DYSFUNCTIONAL UTERINE BLEEDING [None]
